FAERS Safety Report 6023131-1 (Version None)
Quarter: 2008Q4

REPORT INFORMATION
  Report Type: 
  Country: None (occurrence: None)
  Receive Date: 20081223
  Receipt Date: 20081208
  Transmission Date: 20090506
  Serious: Yes (Hospitalization)
  Sender: FDA-Public Use
  Company Number: 2008S1021873

PATIENT
  Age: 23 Year
  Sex: Female

DRUGS (5)
  1. CLOZAPINE [Suspect]
     Indication: SCHIZOPHRENIA, DISORGANISED TYPE
     Dosage: ; ORAL
     Route: 048
     Dates: start: 20080215, end: 20080303
  2. CLOZAPINE [Suspect]
     Indication: SCHIZOPHRENIA, DISORGANISED TYPE
     Dosage: ; ORAL
     Route: 048
     Dates: start: 20080304, end: 20080312
  3. CLOZAPINE [Suspect]
     Indication: SCHIZOPHRENIA, DISORGANISED TYPE
     Dosage: ; ORAL
     Route: 048
     Dates: start: 20080313, end: 20080401
  4. CLOZAPINE [Suspect]
     Indication: SCHIZOPHRENIA, DISORGANISED TYPE
     Dosage: ; ORAL
     Route: 048
     Dates: start: 20080402
  5. LORAZEPAM [Concomitant]

REACTIONS (1)
  - TRANSAMINASES INCREASED [None]
